FAERS Safety Report 14921747 (Version 1)
Quarter: 2018Q2

REPORT INFORMATION
  Report Type: Spontaneous
  Country: BR (occurrence: BR)
  Receive Date: 20180522
  Receipt Date: 20180522
  Transmission Date: 20180711
  Serious: Yes (Hospitalization, Other)
  Sender: FDA-Public Use
  Company Number: BR-ASTELLAS-2018US022794

PATIENT
  Weight: .84 kg

DRUGS (1)
  1. TACROLIMUS. [Suspect]
     Active Substance: TACROLIMUS
     Indication: FOETAL EXPOSURE DURING PREGNANCY
     Dosage: UNK, UNKNOWN FREQ.
     Route: 064

REACTIONS (9)
  - Lung disorder [Unknown]
  - Foetal distress syndrome [Unknown]
  - Premature baby [Unknown]
  - Fluid retention [Unknown]
  - Retinopathy of prematurity [Unknown]
  - Infection [Unknown]
  - Pulmonary valve stenosis [Unknown]
  - Right ventricular dilatation [Unknown]
  - Apgar score low [Unknown]
